FAERS Safety Report 5933476-9 (Version None)
Quarter: 2008Q4

REPORT INFORMATION
  Report Type: 
  Country: None (occurrence: None)
  Receive Date: 20081024
  Receipt Date: 20081010
  Transmission Date: 20090506
  Serious: Yes (Hospitalization, Other)
  Sender: FDA-Public Use
  Company Number: SPI200800497

PATIENT
  Age: 61 Year
  Sex: Male
  Weight: 49.9 kg

DRUGS (13)
  1. AMITIZA [Suspect]
     Indication: CONSTIPATION
     Dosage: 24 MCG, QD, 24 MCG, BID,  ORAL
     Route: 048
     Dates: start: 20080816, end: 20080917
  2. AMITIZA [Suspect]
     Indication: CONSTIPATION
     Dosage: 24 MCG, QD, 24 MCG, BID,  ORAL
     Route: 048
     Dates: start: 20080918
  3. CLOZARIL [Concomitant]
  4. DILANTIN [Concomitant]
  5. PHENYTOIN [Concomitant]
  6. FOSAMAX [Concomitant]
  7. LEVOXYL [Concomitant]
  8. COLACE(DOCUSATE SODIUM) [Concomitant]
  9. ATIVAN [Concomitant]
  10. CALCIUM WITH VITAMIN D [Concomitant]
  11. MIRALAX [Concomitant]
  12. SENOKOT [Concomitant]
  13. MACRODANTIN [Concomitant]

REACTIONS (3)
  - ANTICONVULSANT DRUG LEVEL DECREASED [None]
  - CONVULSION [None]
  - FALL [None]
